FAERS Safety Report 8560553-9 (Version None)
Quarter: 2012Q3

REPORT INFORMATION
  Report Type: 
  Country: None (occurrence: None)
  Receive Date: 20120802
  Receipt Date: 20120727
  Transmission Date: 20120928
  Serious: Yes (Hospitalization)
  Sender: FDA-Public Use
  Company Number: GB-B.I. PHARMACEUTICALS,INC./RIDGEFIELD-2012-UK-00886UK

PATIENT
  Age: 75 Year
  Sex: Male

DRUGS (4)
  1. SPIRIVA [Suspect]
     Route: 055
  2. LIPITOR [Concomitant]
  3. DIGOXIN [Concomitant]
  4. MANY OTHER MEDICATIONS [Concomitant]
     Indication: PRODUCT USED FOR UNKNOWN INDICATION

REACTIONS (2)
  - LOWER RESPIRATORY TRACT INFECTION [None]
  - THROAT IRRITATION [None]
